FAERS Safety Report 4285797-6 (Version None)
Quarter: 2004Q1

REPORT INFORMATION
  Report Type: 
  Country: None (occurrence: None)
  Receive Date: 20040203
  Receipt Date: 20040123
  Transmission Date: 20041129
  Serious: Yes (Hospitalization)
  Sender: FDA-Public Use
  Company Number: 03P-150-0244300-00

PATIENT
  Age: 75 Year
  Sex: Female

DRUGS (4)
  1. HUMIRA [Suspect]
     Indication: RHEUMATOID ARTHRITIS
     Dosage: 40 MG, SUBCUTANEOUS
     Route: 058
     Dates: start: 20030901, end: 20031113
  2. METHOTREXATE [Concomitant]
  3. KETOPROFEN [Concomitant]
  4. ATENOLOL [Concomitant]

REACTIONS (4)
  - ERYTHEMA [None]
  - FEELING HOT [None]
  - JOINT DESTRUCTION [None]
  - JOINT TUBERCULOSIS [None]
